FAERS Safety Report 11709790 (Version 1)
Quarter: 2015Q4

REPORT INFORMATION
  Report Type: Spontaneous
  Country: US (occurrence: US)
  Receive Date: 20151104
  Receipt Date: 20151104
  Transmission Date: 20160304
  Serious: No
  Sender: FDA-Public Use
  Company Number: US-ELI_LILLY_AND_COMPANY-US201103008485

PATIENT
  Age: 60 Year
  Sex: Female

DRUGS (2)
  1. FORTEO [Suspect]
     Active Substance: TERIPARATIDE
     Indication: OSTEOPOROSIS
     Dosage: 20 UG, QD
     Dates: start: 20110317
  2. CALTRATE                           /00108001/ [Concomitant]
     Dosage: UNK UNK, QD

REACTIONS (3)
  - Nervousness [Unknown]
  - Heart rate increased [Unknown]
  - Dyspnoea [Unknown]
